FAERS Safety Report 25237699 (Version 1)
Quarter: 2025Q2

REPORT INFORMATION
  Report Type: Spontaneous
  Country: IT (occurrence: IT)
  Receive Date: 20250425
  Receipt Date: 20250425
  Transmission Date: 20250716
  Serious: Yes (Life-Threatening, Hospitalization)
  Sender: CHEPLAPHARM
  Company Number: None

PATIENT
  Age: 36 Year
  Sex: Male

DRUGS (2)
  1. OLANZAPINE PAMOATE [Suspect]
     Active Substance: OLANZAPINE PAMOATE
     Indication: Schizophrenia
     Dosage: ZYPADHERA 405 MG, 1 VIAL INTRAMUSCULARLY EVERY 4 WEEKS
     Route: 030
     Dates: start: 2016
  2. HALDOL [Concomitant]
     Active Substance: HALOPERIDOL
     Dosage: 15 DROPS/ DAY?DAILY DOSE: 15 DROP
     Route: 048

REACTIONS (5)
  - Loss of consciousness [Recovered/Resolved]
  - Dysarthria [Recovered/Resolved]
  - Tachycardia [Recovered/Resolved]
  - Paraesthesia [Recovered/Resolved]
  - Hypoxia [Recovered/Resolved]

NARRATIVE: CASE EVENT DATE: 20250328
